FAERS Safety Report 8817944 (Version 1)
Quarter: 2012Q4

REPORT INFORMATION
  Report Type: 
  Country: US (occurrence: US)
  Receive Date: 20121001
  Receipt Date: 20121001
  Transmission Date: 20130627
  Serious: No
  Sender: FDA-Public Use
  Company Number: US-SANOFI-AVENTIS-2012SA036715

PATIENT
  Age: 75 Year
  Sex: Male
  Weight: 78 kg

DRUGS (10)
  1. ELIGARD [Suspect]
     Indication: PROSTATE CANCER
     Route: 065
     Dates: start: 20101102, end: 20101102
  2. ELIGARD [Suspect]
     Indication: PROSTATE CANCER
     Route: 065
     Dates: start: 20110504, end: 20110504
  3. LOVASTATIN [Concomitant]
  4. METOPROLOL [Concomitant]
  5. LOSARTAN [Concomitant]
  6. CLOPIDOGREL [Concomitant]
  7. ASPIRIN [Concomitant]
  8. CITALOPRAM [Concomitant]
  9. ZOLPIDEM [Concomitant]
  10. PRISTIQ [Concomitant]
     Indication: DEPRESSION

REACTIONS (3)
  - Weight increased [Not Recovered/Not Resolved]
  - Waist circumference increased [Not Recovered/Not Resolved]
  - Blood testosterone increased [Not Recovered/Not Resolved]
